FAERS Safety Report 6357456-7 (Version None)
Quarter: 2009Q3

REPORT INFORMATION
  Report Type: 
  Country: None (occurrence: None)
  Receive Date: 20090916
  Receipt Date: 20090908
  Transmission Date: 20100115
  Serious: Yes (Other)
  Sender: FDA-Public Use
  Company Number: US-JNJFOC-20090903511

PATIENT

DRUGS (1)
  1. RISPERIDONE [Suspect]
     Indication: SCHIZOTYPAL PERSONALITY DISORDER
     Dosage: 0.25 MG/DAY TO 2.0 MG/DAY
     Route: 065

REACTIONS (1)
  - SUICIDAL IDEATION [None]
